FAERS Safety Report 6862386-8 (Version None)
Quarter: 2010Q3

REPORT INFORMATION
  Report Type: 
  Country: None (occurrence: None)
  Receive Date: 20100721
  Receipt Date: 20100716
  Transmission Date: 20110219
  Serious: Yes (Life-Threatening)
  Sender: FDA-Public Use
  Company Number: DE-ASTRAZENECA-2010SE33335

PATIENT
  Sex: Male

DRUGS (2)
  1. MEROPENEM [Suspect]
     Indication: SEPSIS
     Route: 041
     Dates: start: 20090225, end: 20100303
  2. MEROPENEM [Suspect]
     Indication: SEPTIC SHOCK
     Route: 041
     Dates: start: 20090225, end: 20100303

REACTIONS (1)
  - CARDIAC ARREST [None]
